FAERS Safety Report 10057445 (Version 2)
Quarter: 2014Q2

REPORT INFORMATION
  Report Type: Report from Study
  Country: AT (occurrence: AT)
  Receive Date: 20140403
  Receipt Date: 20140418
  Transmission Date: 20141212
  Serious: Yes (Hospitalization)
  Sender: FDA-Public Use
  Company Number: AT-ONYX-2014-0654

PATIENT
  Age: 78 Year
  Sex: Female
  Weight: 75.9 kg

DRUGS (24)
  1. CARFILZOMIB [Suspect]
     Indication: PLASMA CELL MYELOMA
     Route: 042
     Dates: start: 20131220, end: 20131221
  2. CARFILZOMIB [Suspect]
     Route: 042
     Dates: start: 20131227, end: 20131228
  3. CARFILZOMIB [Suspect]
     Route: 042
     Dates: start: 20140110, end: 20140118
  4. CARFILZOMIB [Suspect]
     Route: 042
     Dates: start: 20140203, end: 20140224
  5. CARFILZOMIB [Suspect]
     Route: 042
     Dates: start: 20140225
  6. MELPHALAN [Suspect]
     Indication: PLASMA CELL MYELOMA
     Route: 048
     Dates: start: 20131220
  7. PREDNISONE [Suspect]
     Indication: PLASMA CELL MYELOMA
     Route: 048
     Dates: start: 20131220
  8. THROMBO ASS [Concomitant]
     Indication: HYPERTENSION
     Route: 048
     Dates: start: 2006
  9. PANTOLOC [Concomitant]
     Indication: GASTRIC DISORDER
     Route: 048
     Dates: start: 201312
  10. LAEVOLAC [Concomitant]
     Indication: CONSTIPATION
     Route: 048
     Dates: start: 201312
  11. JODTHYROX [Concomitant]
     Indication: HYPOTHYROIDISM
     Route: 048
     Dates: start: 201008
  12. SEROQUEL [Concomitant]
     Indication: ANTIDEPRESSANT THERAPY
     Route: 048
     Dates: start: 201312
  13. TRITTICO [Concomitant]
     Indication: ANTIDEPRESSANT THERAPY
     Route: 048
     Dates: start: 201312
  14. CAL-D-VITA [Concomitant]
     Indication: OSTEOPOROSIS PROPHYLAXIS
     Route: 048
     Dates: start: 201312
  15. VALTREX [Concomitant]
     Indication: PREMEDICATION
     Route: 048
     Dates: start: 20131220
  16. LOVENOX [Concomitant]
     Indication: THROMBOPHLEBITIS
     Route: 058
     Dates: start: 20140121
  17. ZOMETA [Concomitant]
     Indication: OSTEOPOROSIS PROPHYLAXIS
     Route: 058
     Dates: start: 20131220
  18. GLANDOMED [Concomitant]
     Indication: MUCOSITIS MANAGEMENT
     Route: 048
     Dates: start: 20140111
  19. MYCOSTATIN [Concomitant]
     Indication: MUCOSITIS MANAGEMENT
     Route: 048
     Dates: start: 20140111
  20. MEXALEN [Concomitant]
     Indication: PAIN MANAGEMENT
     Route: 048
     Dates: start: 20131220
  21. NOVALGIN [Concomitant]
     Indication: PAIN MANAGEMENT
     Route: 048
     Dates: start: 20131220
  22. SIRDALUD [Concomitant]
     Indication: PAIN MANAGEMENT
     Route: 048
     Dates: start: 20131220
  23. ONDASAN [Concomitant]
     Indication: NAUSEA
     Route: 048
     Dates: start: 20131220
  24. PASPERTIN [Concomitant]
     Indication: NAUSEA
     Route: 048
     Dates: start: 20131220

REACTIONS (1)
  - Urinary retention [Recovered/Resolved]
